FAERS Safety Report 9840281 (Version 1)
Quarter: 2013Q4

REPORT INFORMATION
  Report Type: Spontaneous
  Country: US (occurrence: None)
  Receive Date: 20131211
  Receipt Date: 20131211
  Transmission Date: 20140711
  Serious: Yes (Other)
  Sender: FDA-Public Use
  Company Number: ALL1-2012-04775

PATIENT
  Age: 42 Year
  Sex: Female
  Weight: 86.2 kg

DRUGS (3)
  1. VYVANSE (LISDEXAMFETAMINE DIMESYLATE) [Suspect]
     Indication: ATTENTION DEFICIT/HYPERACTIVITY DISORDER
     Route: 048
     Dates: start: 2012, end: 2012
  2. VYVANSE (LISDEXAMFETAMINE DIMESYLATE) [Suspect]
     Indication: ATTENTION DEFICIT/HYPERACTIVITY DISORDER
     Route: 048
     Dates: start: 2012, end: 2012
  3. CYMBLATA (DULOXETINE HYDROCHLORIDE) [Concomitant]

REACTIONS (5)
  - Depression [None]
  - Abdominal discomfort [None]
  - Anxiety [None]
  - Initial insomnia [None]
  - Condition aggravated [None]
